FAERS Safety Report 14176375 (Version 1)
Quarter: 2017Q4

REPORT INFORMATION
  Report Type: Spontaneous
  Country: CN (occurrence: CN)
  Receive Date: 20171109
  Receipt Date: 20171109
  Transmission Date: 20180321
  Serious: Yes (Hospitalization)
  Sender: FDA-Public Use
  Company Number: CN-ASTRAZENECA-2017SF13463

PATIENT
  Age: 24 Year
  Sex: Female

DRUGS (1)
  1. BYETTA [Suspect]
     Active Substance: EXENATIDE
     Indication: POLYCYSTIC OVARIES
     Route: 065

REACTIONS (9)
  - White blood cell count decreased [Unknown]
  - Eating disorder [Unknown]
  - Asthenia [Unknown]
  - Off label use [Unknown]
  - Hyperpyrexia [Unknown]
  - Postprandial hypoglycaemia [Unknown]
  - Nausea [Unknown]
  - Palpitations [Unknown]
  - Product use in unapproved indication [Unknown]
